FAERS Safety Report 9314350 (Version 1)
Quarter: 2013Q2

REPORT INFORMATION
  Report Type: Spontaneous
  Country: US (occurrence: None)
  Receive Date: 20130524
  Receipt Date: 20130524
  Transmission Date: 20140414
  Serious: Yes (Other)
  Sender: FDA-Public Use
  Company Number: None

PATIENT
  Age: 38 Year
  Sex: Female
  Weight: 97.52 kg

DRUGS (2)
  1. HYDROCODONE/ACETAMINOPHEN [Suspect]
     Dosage: 4  PER DAY
     Route: 048
     Dates: start: 20130109, end: 20130525
  2. HYDROCODONE/ACETAMINOPHEN [Suspect]
     Dosage: 4  PER DAY
     Route: 048
     Dates: start: 20130109, end: 20130525

REACTIONS (4)
  - Nausea [None]
  - Fatigue [None]
  - Drug ineffective [None]
  - Product formulation issue [None]
